FAERS Safety Report 8110358-8 (Version None)
Quarter: 2012Q1

REPORT INFORMATION
  Report Type: 
  Country: None (occurrence: None)
  Receive Date: 20120202
  Receipt Date: 20120116
  Transmission Date: 20120608
  Serious: Yes (Death, Hospitalization)
  Sender: FDA-Public Use
  Company Number: DE-ROCHE-563238

PATIENT
  Sex: Female

DRUGS (6)
  1. LAPATINIB [Suspect]
     Indication: BREAST CANCER METASTATIC
     Dosage: INDICATION REPORTED ^BRAIN METASTASIS, METASTATIC BREAST CANCER^
     Route: 048
     Dates: start: 20080301, end: 20080430
  2. FUROSEMIDE [Suspect]
     Indication: OEDEMA
     Route: 048
     Dates: start: 20080418, end: 20080430
  3. LEVETIRACETAM [Concomitant]
  4. PREDNISONE TAB [Concomitant]
  5. VALPROATE SODIUM [Concomitant]
  6. XELODA [Suspect]
     Indication: BREAST CANCER METASTATIC
     Dosage: INDICATION REPORTED ^BRAIN METASTASIS, METASTATIC BREAST CANCER^, DOSE REPORTED: 2000 MG/M2 CYCLIC
     Route: 048
     Dates: start: 20080301, end: 20080430

REACTIONS (4)
  - HYPOKALAEMIA [None]
  - DYSPNOEA [None]
  - MULTI-ORGAN FAILURE [None]
  - HYPOCALCAEMIA [None]
